FAERS Safety Report 11948418 (Version 1)
Quarter: 2016Q1

REPORT INFORMATION
  Report Type: Spontaneous
  Country: AU (occurrence: AU)
  Receive Date: 20160125
  Receipt Date: 20160125
  Transmission Date: 20160526
  Serious: Yes (Other)
  Sender: FDA-Public Use
  Company Number: AU-MYLANLABS-2016M1002738

PATIENT

DRUGS (3)
  1. WARFARIN [Suspect]
     Active Substance: WARFARIN
     Indication: PULMONARY EMBOLISM
     Route: 065
  2. CEFTRIAXONE. [Suspect]
     Active Substance: CEFTRIAXONE
     Indication: CELLULITIS
     Route: 048
  3. CEFACLOR. [Suspect]
     Active Substance: CEFACLOR
     Indication: CELLULITIS
     Route: 048

REACTIONS (4)
  - Hyphaema [Recovered/Resolved]
  - International normalised ratio increased [Recovering/Resolving]
  - Blindness [Recovering/Resolving]
  - Blood potassium increased [Recovering/Resolving]
